FAERS Safety Report 7189460-3 (Version None)
Quarter: 2010Q4

REPORT INFORMATION
  Report Type: 
  Country: None (occurrence: None)
  Receive Date: 20101223
  Receipt Date: 20101215
  Transmission Date: 20110411
  Serious: Yes (Hospitalization)
  Sender: FDA-Public Use
  Company Number: US-BIOGENIDEC-2009BI021100

PATIENT
  Age: 48 Year
  Sex: Male
  Weight: 99 kg

DRUGS (21)
  1. TYSABRI [Suspect]
     Indication: MULTIPLE SCLEROSIS
     Route: 042
     Dates: start: 20071227
  2. ADVAIR [Concomitant]
     Indication: DYSPNOEA
     Dates: start: 20031201
  3. ADVAIR [Concomitant]
     Indication: ASTHMA
     Dates: start: 20031201
  4. FLOMAX [Concomitant]
     Indication: URINARY TRACT DISORDER
     Dates: start: 20030101
  5. POLYETHYLENE GLYCOL [Concomitant]
     Indication: GASTROINTESTINAL DISORDER
     Route: 048
  6. POLYETHYLENE GLYCOL [Concomitant]
     Indication: CONSTIPATION
     Route: 048
  7. NEURONTIN [Concomitant]
     Indication: NEURALGIA
     Route: 048
     Dates: start: 20031212, end: 20101214
  8. FLONASE [Concomitant]
     Indication: RHINITIS
     Dates: start: 20000101
  9. AMBIEN [Concomitant]
     Indication: INSOMNIA
     Dates: start: 20050101
  10. LOTREL [Concomitant]
  11. GLYBURIDE [Concomitant]
  12. LANTUS [Concomitant]
  13. CLARITIN [Concomitant]
     Indication: SEASONAL ALLERGY
     Dates: start: 19900101
  14. DOCUSATE [Concomitant]
     Indication: GASTROINTESTINAL HYPOMOTILITY
     Route: 048
     Dates: start: 19980101
  15. SENNA [Concomitant]
     Route: 048
     Dates: start: 19980101
  16. TIZANIDINE HCL [Concomitant]
     Indication: MUSCLE SPASTICITY
     Dates: start: 20030101
  17. PRILOSEC [Concomitant]
     Indication: GASTROOESOPHAGEAL REFLUX DISEASE
     Dates: start: 20020101
  18. CYMBALTA [Concomitant]
     Indication: DEPRESSION
     Dates: start: 20050101
  19. POTASSIUM GLUCONATE TAB [Concomitant]
  20. MULTI-VITAMIN [Concomitant]
  21. VITAMIN B COMPLEX CAP [Concomitant]

REACTIONS (27)
  - ABASIA [None]
  - ANXIETY [None]
  - CHEST PAIN [None]
  - COGNITIVE DISORDER [None]
  - CONFUSIONAL STATE [None]
  - CONSTIPATION [None]
  - DEPRESSION [None]
  - DIABETES MELLITUS [None]
  - DIPLOPIA [None]
  - DRUG EFFECT DECREASED [None]
  - FAECAL INCONTINENCE [None]
  - FALL [None]
  - FATIGUE [None]
  - HALLUCINATION [None]
  - HIP FRACTURE [None]
  - INCONTINENCE [None]
  - MEMORY IMPAIRMENT [None]
  - MULTIPLE SCLEROSIS RELAPSE [None]
  - MUSCLE RIGIDITY [None]
  - MUSCLE SPASMS [None]
  - NEURALGIA [None]
  - POST LUMBAR PUNCTURE SYNDROME [None]
  - PROCEDURAL PAIN [None]
  - URINARY INCONTINENCE [None]
  - URINARY RETENTION [None]
  - URINARY TRACT INFECTION [None]
  - WHEEZING [None]
